FAERS Safety Report 20851525 (Version 1)
Quarter: 2022Q2

REPORT INFORMATION
  Report Type: Report from Study
  Country: ES (occurrence: ES)
  Receive Date: 20220520
  Receipt Date: 20220520
  Transmission Date: 20220720
  Serious: Yes (Other)
  Sender: FDA-Public Use
  Company Number: ES-ALS-000727

PATIENT
  Age: 13 Year
  Sex: Male

DRUGS (12)
  1. METFORMIN [Suspect]
     Active Substance: METFORMIN HYDROCHLORIDE
     Indication: Product use in unapproved indication
     Dosage: 850 MG/DAY
     Route: 065
  2. SITAGLIPTIN [Suspect]
     Active Substance: SITAGLIPTIN
     Indication: Insulin resistant diabetes
     Dosage: 50 MG/DAY
     Route: 065
  3. GLIMEPIRIDE [Suspect]
     Active Substance: GLIMEPIRIDE
     Indication: Insulin resistant diabetes
     Dosage: 4 MG/DAY
     Route: 065
  4. PIOGLITAZONE HYDROCHLORIDE [Suspect]
     Active Substance: PIOGLITAZONE HYDROCHLORIDE
     Indication: Insulin resistant diabetes
     Dosage: 15 MG/DAY
     Route: 065
  5. INSULIN GLARGINE [Suspect]
     Active Substance: INSULIN GLARGINE
     Indication: Insulin resistant diabetes
     Dosage: (INSULIN GLARGINE AND LISPRO) REACHING 156 IU/DAY (TOTAL INSULIN DOSE 2.23 IU/KG/DAY).
     Route: 065
  6. INSULIN LISPRO [Suspect]
     Active Substance: INSULIN LISPRO
     Indication: Insulin resistant diabetes
     Dosage: (INSULIN GLARGINE AND LISPRO) REACHING 156 IU/DAY (TOTAL INSULIN DOSE 2.23 IU/KG/DAY).
     Route: 065
  7. DAPAGLIFLOZIN [Suspect]
     Active Substance: DAPAGLIFLOZIN
     Indication: Insulin resistant diabetes
     Dosage: 10 MG/DAY
     Route: 058
  8. SEMAGLUTIDE [Suspect]
     Active Substance: SEMAGLUTIDE
     Indication: Insulin resistant diabetes
     Dosage: 0.25 MG/WEEK
     Route: 058
  9. METFORMIN [Suspect]
     Active Substance: METFORMIN HYDROCHLORIDE
     Indication: Product use in unapproved indication
     Dosage: 1275 MG/DAY
     Route: 065
  10. METFORMIN [Suspect]
     Active Substance: METFORMIN HYDROCHLORIDE
     Indication: Product use in unapproved indication
     Dosage: 2000 MG/DAY
     Route: 065
  11. SITAGLIPTIN [Suspect]
     Active Substance: SITAGLIPTIN
     Indication: Insulin resistant diabetes
     Dosage: 100 MG/DAY
     Route: 065
  12. SEMAGLUTIDE [Suspect]
     Active Substance: SEMAGLUTIDE
     Indication: Insulin resistant diabetes
     Dosage: 0.5 MG/WEEK
     Route: 058

REACTIONS (4)
  - Hyperglycaemia [Recovered/Resolved]
  - Oedema peripheral [Unknown]
  - Condition aggravated [Unknown]
  - Drug ineffective for unapproved indication [Unknown]
